FAERS Safety Report 9972471 (Version 1)
Quarter: 2014Q1

REPORT INFORMATION
  Report Type: Spontaneous
  Country: BR (occurrence: None)
  Receive Date: 20140304
  Receipt Date: 20140304
  Transmission Date: 20141002
  Serious: Yes (Death, Hospitalization)
  Sender: FDA-Public Use
  Company Number: DSJ-2014-04440

PATIENT
  Sex: Male

DRUGS (4)
  1. BENICAR [Suspect]
     Indication: HYPERTENSION
     Route: 048
     Dates: end: 20120331
  2. ROSUVASTATIN (ROSUVASTATIN) (ROSUVASTATIN) [Concomitant]
  3. CLOPIDOGREL (CLOPIDOGREL) (CLOPIDOGREL) [Concomitant]
  4. MEDICINE FOR ENLARGED PROSTATE [Concomitant]

REACTIONS (5)
  - Stent placement [None]
  - Prostatomegaly [None]
  - Pulmonary valve incompetence [None]
  - Malaise [None]
  - Loss of consciousness [None]
